FAERS Safety Report 25660079 (Version 1)
Quarter: 2025Q3

REPORT INFORMATION
  Report Type: Spontaneous
  Country: US (occurrence: US)
  Receive Date: 20250808
  Receipt Date: 20250808
  Transmission Date: 20251021
  Serious: Yes (Death, Other)
  Sender: PFIZER
  Company Number: US-PFIZER INC-202500159562

PATIENT
  Age: 88 Year
  Sex: Female

DRUGS (17)
  1. IBRANCE [Suspect]
     Active Substance: PALBOCICLIB
     Route: 048
     Dates: start: 20250617
  2. ORAMAGICRX [Concomitant]
  3. FLUCONAZOLE [Concomitant]
     Active Substance: FLUCONAZOLE
  4. ESCITALOPRAM [Concomitant]
     Active Substance: ESCITALOPRAM OXALATE
  5. FUROSEMIDE [Concomitant]
     Active Substance: FUROSEMIDE
  6. CHOLESTYRAMINE [Concomitant]
     Active Substance: CHOLESTYRAMINE
  7. ANASTROZOLE [Concomitant]
     Active Substance: ANASTROZOLE
  8. ASPIRIN [Concomitant]
     Active Substance: ASPIRIN
  9. ATORVASTATIN [Concomitant]
     Active Substance: ATORVASTATIN
  10. CHOLESTYRAMINE [Concomitant]
     Active Substance: CHOLESTYRAMINE
  11. FAMOTIDINE [Concomitant]
     Active Substance: FAMOTIDINE
  12. FASLODEX [Concomitant]
     Active Substance: FULVESTRANT
  13. METOPROLOL [Concomitant]
     Active Substance: METOPROLOL
  14. MIRALAX [Concomitant]
     Active Substance: POLYETHYLENE GLYCOL 3350
  15. OXYCODONE [Concomitant]
     Active Substance: OXYCODONE
  16. TRIAMCINOLONE [Concomitant]
     Active Substance: TRIAMCINOLONE
  17. TRUQAP [Concomitant]
     Active Substance: CAPIVASERTIB

REACTIONS (2)
  - Death [Fatal]
  - Off label use [Unknown]
